FAERS Safety Report 12545575 (Version 2)
Quarter: 2017Q1

REPORT INFORMATION
  Report Type: Spontaneous
  Country: CA (occurrence: CA)
  Receive Date: 20160711
  Receipt Date: 20170126
  Transmission Date: 20170428
  Serious: Yes (Other)
  Sender: FDA-Public Use
  Company Number: CA-ABBVIE-16P-028-1672173-00

PATIENT
  Age: 45 Year
  Sex: Female

DRUGS (1)
  1. LUPRON DEPOT [Suspect]
     Active Substance: LEUPROLIDE ACETATE
     Indication: PRODUCT USED FOR UNKNOWN INDICATION
     Route: 030
     Dates: start: 20151001, end: 20151202

REACTIONS (36)
  - Sinus congestion [Recovering/Resolving]
  - Asthenia [Recovering/Resolving]
  - Feeling hot [Recovering/Resolving]
  - Tinnitus [Unknown]
  - Hyperhidrosis [Unknown]
  - Eczema [Recovering/Resolving]
  - Ear infection [Not Recovered/Not Resolved]
  - Pruritus [Recovering/Resolving]
  - Bladder pain [Recovering/Resolving]
  - Eye infection [Recovering/Resolving]
  - Abdominal discomfort [Recovering/Resolving]
  - Influenza like illness [Recovered/Resolved]
  - Feeling hot [Recovered/Resolved]
  - Pain [Recovering/Resolving]
  - Hot flush [Unknown]
  - Decreased appetite [Recovered/Resolved]
  - Tinnitus [Recovering/Resolving]
  - Musculoskeletal stiffness [Unknown]
  - Asthenia [Recovering/Resolving]
  - Influenza like illness [Recovered/Resolved]
  - Pruritus [Unknown]
  - Sinus disorder [Unknown]
  - Secretion discharge [Recovering/Resolving]
  - Asthenia [Recovered/Resolved]
  - Pain [Recovered/Resolved]
  - Sinus congestion [Unknown]
  - Dysgeusia [Unknown]
  - Pain [Recovering/Resolving]
  - Abdominal discomfort [Recovering/Resolving]
  - Dysgeusia [Unknown]
  - Ear pain [Unknown]
  - Dysgeusia [Recovering/Resolving]
  - Oropharyngeal pain [Recovered/Resolved]
  - Pyrexia [Recovering/Resolving]
  - Oropharyngeal pain [Recovering/Resolving]
  - Abdominal discomfort [Recovered/Resolved]

NARRATIVE: CASE EVENT DATE: 2015
